FAERS Safety Report 19147421 (Version 1)
Quarter: 2021Q2

REPORT INFORMATION
  Report Type: Spontaneous
  Country: FR (occurrence: FR)
  Receive Date: 20210416
  Receipt Date: 20210416
  Transmission Date: 20210717
  Serious: No
  Sender: FDA-Public Use
  Company Number: FR-INDIVIOR LIMITED-INDV-129123-2021

PATIENT

DRUGS (3)
  1. BUPRENORPHINE. [Suspect]
     Active Substance: BUPRENORPHINE
     Indication: DRUG DEPENDENCE
     Dosage: 12 MILLIGRAM, DAILY
     Route: 065
  2. NALMEFENE [Suspect]
     Active Substance: NALMEFENE
     Indication: DRUG THERAPY
     Dosage: UNK
     Route: 065
  3. ALCOHOL. [Suspect]
     Active Substance: ALCOHOL
     Indication: PRODUCT USED FOR UNKNOWN INDICATION
     Dosage: UNK
     Route: 065

REACTIONS (3)
  - Alcohol abuse [Unknown]
  - Contraindicated product administered [Unknown]
  - Drug withdrawal syndrome [Unknown]
